FAERS Safety Report 9112686 (Version 1)
Quarter: 2013Q1

REPORT INFORMATION
  Report Type: Spontaneous
  Country: US (occurrence: US)
  Receive Date: 20130211
  Receipt Date: 20130211
  Transmission Date: 20140127
  Serious: Yes (Hospitalization)
  Sender: FDA-Public Use
  Company Number: US-VERTEX PHARMACEUTICALS INC.-2013-001863

PATIENT
  Age: 34 Year
  Sex: Female

DRUGS (3)
  1. INCIVEK [Suspect]
     Indication: CHRONIC HEPATITIS C
     Dosage: 2250 MG, UNK
     Route: 048
     Dates: start: 20121116, end: 20130111
  2. RIBAVIRIN [Suspect]
     Indication: CHRONIC HEPATITIS C
     Dosage: 600 MG, UNK
     Dates: start: 20121116
  3. PEGINTERFERON ALFA-2A [Suspect]
     Indication: CHRONIC HEPATITIS C
     Dosage: 180 ?G, UNK
     Dates: start: 20121116

REACTIONS (1)
  - Rash [Not Recovered/Not Resolved]
